FAERS Safety Report 15612457 (Version 2)
Quarter: 2023Q2

REPORT INFORMATION
  Report Type: Spontaneous
  Country: JP (occurrence: JP)
  Receive Date: 20181113
  Receipt Date: 20230410
  Transmission Date: 20230721
  Serious: Yes (Life-Threatening, Hospitalization, Other)
  Sender: FDA-Public Use
  Company Number: JP-MYLANLABS-2018M1084806

PATIENT
  Age: 44 Year
  Sex: Female

DRUGS (21)
  1. ACYCLOVIR [Interacting]
     Active Substance: ACYCLOVIR
     Indication: Varicella zoster virus infection
     Dosage: 10 MILLIGRAM/KILOGRAM, QD, SARTED ON DAY 1
     Route: 065
  2. ACYCLOVIR [Interacting]
     Active Substance: ACYCLOVIR
     Indication: Meningoencephalitis herpetic
  3. ACYCLOVIR [Interacting]
     Active Substance: ACYCLOVIR
     Indication: Varicella zoster virus infection
  4. PROPOFOL [Interacting]
     Active Substance: PROPOFOL
     Indication: Adaptive servo-ventilation
     Dosage: 100-150 MG/H; STARTED ON DAY 1
     Route: 065
  5. PROPOFOL [Interacting]
     Active Substance: PROPOFOL
     Indication: Focal dyscognitive seizures
  6. MOSAPRIDE CITRATE [Interacting]
     Active Substance: MOSAPRIDE CITRATE
     Indication: Limbic encephalitis
     Dosage: 15 MILLIGRAM, QD
     Route: 065
  7. QUETIAPINE [Interacting]
     Active Substance: QUETIAPINE
     Indication: Limbic encephalitis
     Dosage: 12.5-25MG/DAY
     Route: 065
  8. LOXOPROFEN [Interacting]
     Active Substance: LOXOPROFEN
     Indication: Limbic encephalitis
     Dosage: 60 MILLIGRAM, QD
     Route: 065
  9. AMPICILLIN AND SULBACTAM [Interacting]
     Active Substance: AMPICILLIN SODIUM\SULBACTAM SODIUM
     Indication: Limbic encephalitis
     Dosage: 3 GRAM, QD, STARTED ON DAY 1
     Route: 065
  10. DEXMEDETOMIDINE HYDROCHLORIDE [Interacting]
     Active Substance: DEXMEDETOMIDINE HYDROCHLORIDE
     Indication: Limbic encephalitis
     Dosage: 0.5-0.7MICROG/KG/H
     Route: 065
  11. LEVETIRACETAM [Interacting]
     Active Substance: LEVETIRACETAM
     Indication: Focal dyscognitive seizures
     Dosage: 3000 MILLIGRAM, QD
     Route: 065
  12. ESOMEPRAZOLE MAGNESIUM [Interacting]
     Active Substance: ESOMEPRAZOLE MAGNESIUM
     Indication: Limbic encephalitis
     Dosage: 20 MILLIGRAM, QD
     Route: 065
  13. FENTANYL [Interacting]
     Active Substance: FENTANYL
     Indication: Limbic encephalitis
     Dosage: 0.07 MILLIGRAM?/HR)
     Route: 065
  14. HALOPERIDOL [Interacting]
     Active Substance: HALOPERIDOL
     Indication: Limbic encephalitis
     Dosage: 5-10 MG/DAY
     Route: 065
  15. BROTIZOLAM [Interacting]
     Active Substance: BROTIZOLAM
     Indication: Limbic encephalitis
     Dosage: 0.25 MILLIGRAM, QD
     Route: 065
  16. EDOXABAN [Interacting]
     Active Substance: EDOXABAN
     Indication: Limbic encephalitis
     Dosage: 30 MILLIGRAM, QD
     Route: 065
  17. LACOSAMIDE [Interacting]
     Active Substance: LACOSAMIDE
     Indication: Focal dyscognitive seizures
     Dosage: 100 MILLIGRAM, QD
     Route: 065
  18. METHYLPREDNISOLONE [Interacting]
     Active Substance: METHYLPREDNISOLONE
     Indication: Limbic encephalitis
     Dosage: 1 GRAM, QD (FOR 3 DAYS, EVERY WEEK, FOR 4 TIMES)
     Route: 065
  19. RAMELTEON [Interacting]
     Active Substance: RAMELTEON
     Indication: Limbic encephalitis
     Dosage: 8 MILLIGRAM, QD
     Route: 065
  20. SUVOREXANT [Interacting]
     Active Substance: SUVOREXANT
     Indication: Limbic encephalitis
     Dosage: 20 MILLIGRAM, QD
     Route: 065
  21. HUMAN IMMUNOGLOBULIN G [Interacting]
     Active Substance: HUMAN IMMUNOGLOBULIN G
     Indication: Limbic encephalitis
     Dosage: 0.4 G/KG/DAY FOR 5 DAYS; STARTED ON DAY 4
     Route: 042

REACTIONS (2)
  - Toxic epidermal necrolysis [Recovered/Resolved]
  - Drug interaction [Recovered/Resolved]
